FAERS Safety Report 6211348-2 (Version None)
Quarter: 2009Q2

REPORT INFORMATION
  Report Type: 
  Country: None (occurrence: None)
  Receive Date: 20090528
  Receipt Date: 20090522
  Transmission Date: 20091009
  Serious: Yes (Hospitalization)
  Sender: FDA-Public Use
  Company Number: CIP09001317

PATIENT
  Age: 70 Year
  Sex: Female

DRUGS (5)
  1. ACTONEL COMBI(RISEDRONATE SODIUM 35 MG, CALCIUM CARBONATE 1250 MG) TAB [Suspect]
     Indication: OSTEOPOROSIS
     Dosage: 1 TABLET CYCLIC DAILY, ORAL
     Route: 048
     Dates: start: 20070101
  2. MINAX (METOPROLOL TARTRATE) [Concomitant]
  3. LIPITOR [Concomitant]
  4. WARFARIN SODIUM [Concomitant]
  5. NORSPAN /00444001/ (BUPRENORPHINE) [Concomitant]

REACTIONS (4)
  - DIZZINESS [None]
  - HYPOAESTHESIA [None]
  - PARAESTHESIA [None]
  - SPEECH DISORDER [None]
